FAERS Safety Report 17565584 (Version 2)
Quarter: 2020Q1

REPORT INFORMATION
  Report Type: Spontaneous
  Country: US (occurrence: US)
  Receive Date: 20200320
  Receipt Date: 20200327
  Transmission Date: 20200409
  Serious: No
  Sender: FDA-Public Use
  Company Number: US-PFIZER INC-2020120897

PATIENT
  Age: 77 Year

DRUGS (1)
  1. DILANTIN [Suspect]
     Active Substance: PHENYTOIN
     Indication: IDIOPATHIC GENERALISED EPILEPSY
     Dosage: 500 MG, DAILY (1 CAPSULE THREE TIMES DAILY AND 2 CAPSULES AT BEDTIME)
     Route: 048

REACTIONS (1)
  - Hypoacusis [Unknown]
